FAERS Safety Report 24560563 (Version 2)
Quarter: 2024Q4

REPORT INFORMATION
  Report Type: Spontaneous
  Country: US (occurrence: US)
  Receive Date: 20241029
  Receipt Date: 20241029
  Transmission Date: 20250115
  Serious: Yes (Other)
  Sender: ROCHE
  Company Number: US-ROCHE-10000116572

PATIENT
  Sex: Male

DRUGS (1)
  1. GAZYVA [Suspect]
     Active Substance: OBINUTUZUMAB
     Indication: Focal segmental glomerulosclerosis
     Route: 065

REACTIONS (2)
  - Off label use [Unknown]
  - Follicular lymphoma [Unknown]
